FAERS Safety Report 12451607 (Version 2)
Quarter: 2016Q4

REPORT INFORMATION
  Report Type: Spontaneous
  Country: US (occurrence: US)
  Receive Date: 20160609
  Receipt Date: 20161014
  Transmission Date: 20170207
  Serious: No
  Sender: FDA-Public Use
  Company Number: US-GLAXOSMITHKLINE-US2016078925

PATIENT
  Sex: Male

DRUGS (1)
  1. FLONASE [Suspect]
     Active Substance: FLUTICASONE PROPIONATE
     Indication: INFECTION
     Dosage: UNK

REACTIONS (3)
  - Ageusia [Not Recovered/Not Resolved]
  - Off label use [Unknown]
  - Anosmia [Not Recovered/Not Resolved]
